FAERS Safety Report 10960838 (Version 1)
Quarter: 2015Q1

REPORT INFORMATION
  Report Type: Spontaneous
  Country: US (occurrence: None)
  Receive Date: 20150326
  Receipt Date: 20150326
  Transmission Date: 20150721
  Serious: Yes (Hospitalization, Disabling)
  Sender: FDA-Public Use
  Company Number: None

PATIENT
  Age: 81 Year
  Sex: Female
  Weight: 56.7 kg

DRUGS (12)
  1. 1ADAY VITAMIN (OVER 50+) [Concomitant]
  2. TERAZOSIN [Concomitant]
     Active Substance: TERAZOSIN\TERAZOSIN HYDROCHLORIDE
  3. FUROSEMIDE. [Concomitant]
     Active Substance: FUROSEMIDE
  4. MIRTAZAPINE. [Concomitant]
     Active Substance: MIRTAZAPINE
  5. BIOTIN [Concomitant]
     Active Substance: BIOTIN
  6. LUTEIN [Concomitant]
     Active Substance: LUTEIN
  7. LEVOFLOXACIN. [Suspect]
     Active Substance: LEVOFLOXACIN
     Indication: DEVICE RELATED INFECTION
     Dosage: 1 TAB EVERY 24 HRS MOUTH
     Route: 048
     Dates: start: 20080109, end: 20080112
  8. AMIOPIDINE [Concomitant]
  9. OCUVITE [Concomitant]
     Active Substance: VITAMINS
  10. WARFARIN [Concomitant]
     Active Substance: WARFARIN
  11. BABY ASPIRIN [Concomitant]
     Active Substance: ASPIRIN
  12. LISINOPRIA [Concomitant]

REACTIONS (3)
  - Hypoaesthesia [None]
  - Skin disorder [None]
  - Pruritus [None]
